FAERS Safety Report 13363391 (Version 1)
Quarter: 2017Q1

REPORT INFORMATION
  Report Type: Spontaneous
  Country: US (occurrence: US)
  Receive Date: 20170323
  Receipt Date: 20170323
  Transmission Date: 20170429
  Serious: Yes (Other)
  Sender: FDA-Public Use
  Company Number: US-PFIZER INC-2017122072

PATIENT
  Age: 35 Year
  Weight: 117 kg

DRUGS (1)
  1. CHANTIX [Suspect]
     Active Substance: VARENICLINE TARTRATE
     Dosage: UNK
     Dates: start: 2017

REACTIONS (10)
  - Confusional state [Unknown]
  - Constipation [Unknown]
  - Skin irritation [Unknown]
  - Feeling abnormal [Unknown]
  - Logorrhoea [Unknown]
  - Mental impairment [Unknown]
  - Aphasia [Unknown]
  - Fatigue [Unknown]
  - Lethargy [Unknown]
  - Nervousness [Unknown]

NARRATIVE: CASE EVENT DATE: 2017
